FAERS Safety Report 7014376-2 (Version None)
Quarter: 2010Q3

REPORT INFORMATION
  Report Type: 
  Country: None (occurrence: None)
  Receive Date: 20100924
  Receipt Date: 20100924
  Transmission Date: 20110219
  Serious: Yes (Hospitalization)
  Sender: FDA-Public Use
  Company Number: None

PATIENT
  Sex: Male
  Weight: 42.4 kg

DRUGS (6)
  1. PEG-L-ASPARAGINASE (PEGASPARGASE, ONCOSPAR) [Suspect]
     Dosage: 3232 MG
     Dates: end: 20100914
  2. VINCRISTINE SULFATE [Suspect]
     Dosage: 5.8 MG
     Dates: end: 20100914
  3. CYCLOPHOSPHAMIDE [Suspect]
     Dosage: 2580 MG
     Dates: end: 20100830
  4. CYTARABINE [Suspect]
     Dosage: 1548 MG
     Dates: end: 20100910
  5. MERCAPTOPURINE [Suspect]
     Dosage: 2200 MG
     Dates: end: 20100913
  6. METHOTREXATE [Suspect]
     Dosage: 60 MG
     Dates: end: 20100809

REACTIONS (7)
  - ANAPHYLACTIC REACTION [None]
  - CARDIO-RESPIRATORY ARREST [None]
  - FLUSHING [None]
  - GRAND MAL CONVULSION [None]
  - HYPOTENSION [None]
  - HYPOXIA [None]
  - LOSS OF CONSCIOUSNESS [None]
